FAERS Safety Report 17631410 (Version 1)
Quarter: 2020Q2

REPORT INFORMATION
  Report Type: Spontaneous
  Country: US (occurrence: US)
  Receive Date: 20200406
  Receipt Date: 20200406
  Transmission Date: 20200713
  Serious: Yes (Other)
  Sender: FDA-Public Use
  Company Number: None

PATIENT
  Age: 77 Year
  Sex: Female

DRUGS (2)
  1. BEOVU [Concomitant]
     Active Substance: BROLUCIZUMAB-DBLL
     Dates: start: 20200219, end: 20200219
  2. BEOVU [Suspect]
     Active Substance: BROLUCIZUMAB-DBLL
     Indication: NEOVASCULAR AGE-RELATED MACULAR DEGENERATION
     Route: 031
     Dates: start: 20200219, end: 20200219

REACTIONS (1)
  - Inflammation [None]

NARRATIVE: CASE EVENT DATE: 20200219
